FAERS Safety Report 7373944-9 (Version None)
Quarter: 2011Q1

REPORT INFORMATION
  Report Type: 
  Country: None (occurrence: None)
  Receive Date: 20110317
  Receipt Date: 20110307
  Transmission Date: 20110831
  Serious: Yes (Hospitalization, Disabling, Other)
  Sender: FDA-Public Use
  Company Number: 2010SP040550

PATIENT
  Age: 36 Year
  Sex: Female
  Weight: 86.1834 kg

DRUGS (5)
  1. NUVARING [Suspect]
     Indication: CONTRACEPTION
     Dates: start: 20070810, end: 20080814
  2. LEXAPRO [Suspect]
     Indication: ANXIETY
  3. DILANTIN [Suspect]
     Indication: CONVULSION
  4. ADVIL LIQUI-GELS [Concomitant]
  5. MARIJUANA [Concomitant]

REACTIONS (16)
  - CONVULSION [None]
  - TENSION HEADACHE [None]
  - CEREBRAL HAEMORRHAGE [None]
  - DEPRESSION [None]
  - INSOMNIA [None]
  - ANXIETY [None]
  - THROMBOSIS [None]
  - ARTERIOVENOUS MALFORMATION [None]
  - CEREBROVASCULAR ACCIDENT [None]
  - DRUG ABUSE [None]
  - POST-TRAUMATIC STRESS DISORDER [None]
  - HYPERHIDROSIS [None]
  - CHOLELITHIASIS [None]
  - WHITE BLOOD CELL COUNT INCREASED [None]
  - ACTIVATED PARTIAL THROMBOPLASTIN TIME PROLONGED [None]
  - VASOGENIC CEREBRAL OEDEMA [None]
